FAERS Safety Report 8093106-X (Version None)
Quarter: 2012Q1

REPORT INFORMATION
  Report Type: 
  Country: None (occurrence: None)
  Receive Date: 20120128
  Receipt Date: 20111010
  Transmission Date: 20120608
  Serious: No
  Sender: FDA-Public Use
  Company Number: US-ABBOTT-11P-163-0849659-00

PATIENT
  Sex: Female
  Weight: 79.904 kg

DRUGS (10)
  1. PREMARIN [Concomitant]
     Indication: MENOPAUSE
     Dosage: DAILY
  2. CHLORDIAZEPOXIDE [Concomitant]
     Indication: ABDOMINAL PAIN
     Dosage: UP TO 4 TIMES A DAY
  3. UNKNOWN MEDICATIONS [Concomitant]
     Indication: PRODUCT USED FOR UNKNOWN INDICATION
  4. PREDNISONE TAB [Concomitant]
     Indication: COLITIS ULCERATIVE
     Dosage: DAILY
     Dates: start: 20110701
  5. SIMVASTATIN [Concomitant]
     Indication: BLOOD CHOLESTEROL INCREASED
     Dosage: DAILY
  6. HUMIRA [Suspect]
     Indication: COLITIS ULCERATIVE
     Route: 058
     Dates: start: 20100101, end: 20100101
  7. HUMIRA [Suspect]
     Route: 058
     Dates: start: 20110801
  8. LEXAPRO [Concomitant]
     Indication: ANXIETY
     Dosage: DAILY
  9. LORAZEPAM [Concomitant]
     Indication: ANXIETY
  10. ASACOL [Concomitant]
     Indication: COLITIS ULCERATIVE

REACTIONS (11)
  - DIARRHOEA [None]
  - DRUG DOSE OMISSION [None]
  - FREQUENT BOWEL MOVEMENTS [None]
  - HAEMATOCHEZIA [None]
  - ABDOMINAL DISCOMFORT [None]
  - ABDOMINAL DISTENSION [None]
  - COLITIS ULCERATIVE [None]
  - ABDOMINAL PAIN [None]
  - DEVICE MALFUNCTION [None]
  - DRUG INEFFECTIVE [None]
  - FATIGUE [None]
